FAERS Safety Report 8261310-3 (Version None)
Quarter: 2012Q2

REPORT INFORMATION
  Report Type: 
  Country: None (occurrence: None)
  Receive Date: 20120402
  Receipt Date: 20120319
  Transmission Date: 20120825
  Serious: Yes (Other)
  Sender: FDA-Public Use
  Company Number: 2012P1010271

PATIENT
  Age: 32 Year
  Sex: Male

DRUGS (3)
  1. FOSFOMYCIN [Concomitant]
  2. CEFOTAXIME [Suspect]
     Indication: ENDOCARDITIS
     Dosage: 3 GM;QD;IV
     Route: 042
  3. GENTAMICIN [Concomitant]

REACTIONS (13)
  - RASH ERYTHEMATOUS [None]
  - FACE OEDEMA [None]
  - DRUG RASH WITH EOSINOPHILIA AND SYSTEMIC SYMPTOMS [None]
  - BLOOD LACTATE DEHYDROGENASE INCREASED [None]
  - RASH MACULO-PAPULAR [None]
  - LYMPHADENOPATHY [None]
  - ALANINE AMINOTRANSFERASE INCREASED [None]
  - CONJUNCTIVAL HYPERAEMIA [None]
  - ASPARTATE AMINOTRANSFERASE INCREASED [None]
  - RASH PRURITIC [None]
  - RASH GENERALISED [None]
  - BODY TEMPERATURE INCREASED [None]
  - WHITE BLOOD CELL COUNT INCREASED [None]
